FAERS Safety Report 8080688-7 (Version None)
Quarter: 2012Q1

REPORT INFORMATION
  Report Type: 
  Country: None (occurrence: None)
  Receive Date: 20120130
  Receipt Date: 20120123
  Transmission Date: 20120608
  Serious: Yes (Hospitalization)
  Sender: FDA-Public Use
  Company Number: PHEH2011US012884

PATIENT
  Sex: Male

DRUGS (15)
  1. LORAZEPAM [Concomitant]
     Dosage: 2 MG
  2. CARISOPRODOL [Concomitant]
     Dosage: 350 MG, TID
  3. ONDANSETRON [Concomitant]
     Dosage: UNK UKN, UNK
  4. FENTANYL [Concomitant]
     Dosage: UNK UKN, UNK
  5. METOPROLOL TARTRATE [Concomitant]
     Dosage: 25 MG
     Route: 048
  6. SIMVASTATIN [Concomitant]
     Dosage: UNK UKN, UNK
  7. WARFARIN SODIUM [Concomitant]
     Dosage: 3 MG,
     Route: 048
  8. ERGOCALCIFEROL [Concomitant]
     Dosage: UNK UKN, UNK
  9. GABAPENTIN [Concomitant]
     Dosage: UNK UKN, UNK
  10. TASIGNA [Suspect]
     Indication: CHRONIC MYELOID LEUKAEMIA
     Dosage: 400 MG, BID
     Route: 048
  11. MATULANE [Concomitant]
     Dosage: 50 MG, UNK
  12. PREDNISONE TAB [Concomitant]
     Dosage: UNK UKN, UNK
  13. HYDROCODONE BITARTRATE [Concomitant]
     Dosage: UNK UKN, UNK
  14. TESTOSTERONE [Concomitant]
     Dosage: 3 MG, UNK
     Route: 048
  15. NEULASTA [Concomitant]
     Dosage: UNK UKN, UNK

REACTIONS (9)
  - MENTAL DISORDER [None]
  - ACUTE RESPIRATORY DISTRESS SYNDROME [None]
  - RENAL FAILURE ACUTE [None]
  - PERIRECTAL ABSCESS [None]
  - RESPIRATORY FAILURE [None]
  - DELIRIUM [None]
  - PANCYTOPENIA [None]
  - LEUKOPENIA [None]
  - SEPTIC SHOCK [None]
